FAERS Safety Report 4628827-1 (Version None)
Quarter: 2005Q1

REPORT INFORMATION
  Report Type: 
  Country: None (occurrence: None)
  Receive Date: 20050107
  Receipt Date: 20040927
  Transmission Date: 20050727
  Serious: No
  Sender: FDA-Public Use
  Company Number: 234913K04USA

PATIENT
  Age: 25 Year
  Sex: Female

DRUGS (2)
  1. REBIF [Suspect]
     Indication: MULTIPLE SCLEROSIS
     Dates: start: 20040601
  2. AUGMENTIN '125' [Concomitant]

REACTIONS (3)
  - CRYING [None]
  - INFLUENZA LIKE ILLNESS [None]
  - PRURITUS GENERALISED [None]
